FAERS Safety Report 8560886-6 (Version None)
Quarter: 2012Q3

REPORT INFORMATION
  Report Type: 
  Country: None (occurrence: None)
  Receive Date: 20120802
  Receipt Date: 20120727
  Transmission Date: 20120928
  Serious: Yes (Hospitalization)
  Sender: FDA-Public Use
  Company Number: FR-BRISTOL-MYERS SQUIBB COMPANY-16614265

PATIENT
  Age: 66 Year
  Sex: Male
  Weight: 77 kg

DRUGS (3)
  1. CISPLATIN [Suspect]
     Indication: NON-SMALL CELL LUNG CANCER
     Dosage: RECENT DOSE 80MG/M2, ON 3MAY12 INF 5,
     Route: 042
     Dates: start: 20120131
  2. VINORELBINE [Suspect]
     Indication: NON-SMALL CELL LUNG CANCER
     Dosage: 25MG/M2 DAY 1 AND DAY 8 OF EACH 3WK CYCLE. RECENT DOSE 25MG/M2, INF 10, 10MAY12
     Route: 042
     Dates: start: 20120131
  3. CETUXIMAB [Suspect]
     Indication: NON-SMALL CELL LUNG CANCER
     Dosage: CETUXIMAB 5MG/ML RECENT DOSE 250MG/M2,INF 14, 10MAY12
     Route: 042
     Dates: start: 20120131

REACTIONS (1)
  - FEBRILE BONE MARROW APLASIA [None]
